FAERS Safety Report 4861005-X (Version None)
Quarter: 2005Q4

REPORT INFORMATION
  Report Type: 
  Country: None (occurrence: None)
  Receive Date: 20051220
  Receipt Date: 20050511
  Transmission Date: 20060501
  Serious: No
  Sender: FDA-Public Use
  Company Number: US-GLAXOSMITHKLINE-A0558128A

PATIENT
  Age: 74 Year
  Sex: Male
  Weight: 71.8 kg

DRUGS (3)
  1. TAGAMET [Suspect]
     Dosage: 400MG PER DAY
     Route: 048
     Dates: start: 20050502, end: 20050507
  2. DIOVAN [Concomitant]
  3. PREVACID [Concomitant]

REACTIONS (5)
  - CHOKING SENSATION [None]
  - DRUG INEFFECTIVE [None]
  - DYSPEPSIA [None]
  - PAIN [None]
  - THROAT IRRITATION [None]
